FAERS Safety Report 23580845 (Version 1)
Quarter: 2024Q1

REPORT INFORMATION
  Report Type: Spontaneous
  Country: ES (occurrence: ES)
  Receive Date: 20240229
  Receipt Date: 20240229
  Transmission Date: 20240410
  Serious: Yes (Other)
  Sender: FDA-Public Use
  Company Number: ES-UCBSA-2024009953

PATIENT
  Sex: Male

DRUGS (1)
  1. KEPPRA [Suspect]
     Active Substance: LEVETIRACETAM
     Indication: Epilepsy
     Dosage: 500
     Dates: start: 202306, end: 202309

REACTIONS (9)
  - Petit mal epilepsy [Unknown]
  - Disturbance in attention [Unknown]
  - Negativism [Recovered/Resolved]
  - Asthenia [Recovered/Resolved]
  - Irritability [Recovered/Resolved]
  - Dizziness [Unknown]
  - Somnolence [Unknown]
  - Personality change [Unknown]
  - Anger [Unknown]

NARRATIVE: CASE EVENT DATE: 20230101
